FAERS Safety Report 26126939 (Version 1)
Quarter: 2025Q4

REPORT INFORMATION
  Report Type: Report from Study
  Country: EU (occurrence: EU)
  Receive Date: 20251205
  Receipt Date: 20251205
  Transmission Date: 20260117
  Serious: Yes (Other)
  Sender: ABBVIE
  Company Number: EU-ABBVIE-6299409

PATIENT
  Age: 61 Year
  Sex: Female
  Weight: 80 kg

DRUGS (2)
  1. RINVOQ [Suspect]
     Active Substance: UPADACITINIB
     Indication: Rheumatoid arthritis
     Dosage: LAST ADMIN DATE: SEP 2025
     Route: 048
     Dates: start: 20250512
  2. RINVOQ [Suspect]
     Active Substance: UPADACITINIB
     Indication: Rheumatoid arthritis
     Route: 048
     Dates: start: 202510

REACTIONS (11)
  - Limb injury [Recovered/Resolved]
  - Fatigue [Not Recovered/Not Resolved]
  - Dizziness [Not Recovered/Not Resolved]
  - Weight increased [Not Recovered/Not Resolved]
  - Onychoclasis [Not Recovered/Not Resolved]
  - Oral herpes [Recovered/Resolved]
  - Musculoskeletal stiffness [Recovered/Resolved]
  - Inflammation [Not Recovered/Not Resolved]
  - Nail discolouration [Recovered/Resolved]
  - Stomatitis [Recovered/Resolved]
  - Nail disorder [Recovered/Resolved]

NARRATIVE: CASE EVENT DATE: 20250101
